FAERS Safety Report 6754543-6 (Version None)
Quarter: 2010Q2

REPORT INFORMATION
  Report Type: 
  Country: None (occurrence: None)
  Receive Date: 20100603
  Receipt Date: 20100601
  Transmission Date: 20101027
  Serious: Yes (Other)
  Sender: FDA-Public Use
  Company Number: FR-WYE-G05623610

PATIENT
  Sex: Male
  Weight: 75 kg

DRUGS (3)
  1. REFACTO [Suspect]
     Indication: FACTOR VIII DEFICIENCY
     Dosage: 2500 TO 3000 IU PER INJECTION, ON DEMAND
     Route: 042
     Dates: start: 20100501
  2. REFACTO [Suspect]
     Dosage: 2500 TO 3000 IU PER INJECTION, ON DEMAND
     Route: 042
     Dates: start: 20091204, end: 20091221
  3. ACETAMINOPHEN AND CODEINE PHOSPHATE [Concomitant]
     Indication: PAIN
     Route: 048
     Dates: start: 20091216, end: 20091221

REACTIONS (1)
  - FACTOR VIII INHIBITION [None]
